FAERS Safety Report 6848868-3 (Version None)
Quarter: 2010Q3

REPORT INFORMATION
  Report Type: 
  Country: None (occurrence: None)
  Receive Date: 20100716
  Receipt Date: 20071112
  Transmission Date: 20110219
  Serious: No
  Sender: FDA-Public Use
  Company Number: US-PFIZER INC-2007076253

PATIENT
  Age: 44 Year
  Sex: Male
  Weight: 72.57 kg

DRUGS (2)
  1. CHANTIX [Suspect]
     Indication: SMOKING CESSATION THERAPY
     Dates: start: 20070721, end: 20070722
  2. LYRICA [Concomitant]

REACTIONS (2)
  - HOT FLUSH [None]
  - VOMITING [None]
